FAERS Safety Report 5147929-7 (Version None)
Quarter: 2006Q4

REPORT INFORMATION
  Report Type: 
  Country: None (occurrence: None)
  Receive Date: 20061110
  Receipt Date: 20061031
  Transmission Date: 20070319
  Serious: Yes (Death)
  Sender: FDA-Public Use
  Company Number: US-SANOFI-SYNTHELABO-A03200606643

PATIENT
  Sex: Male
  Weight: 87.53 kg

DRUGS (6)
  1. ATIVAN [Concomitant]
     Dosage: UNK
     Route: 048
  2. SOMA [Concomitant]
     Dosage: UNK
     Route: 048
  3. LOVASTATIN [Concomitant]
     Dosage: UNK
     Route: 048
  4. LISINOPRIL [Concomitant]
     Dosage: UNK
     Route: 048
  5. COREG [Concomitant]
     Dosage: UNK
     Route: 048
  6. PLAVIX [Suspect]
     Indication: MYOCARDIAL INFARCTION
     Route: 048
     Dates: start: 20060617

REACTIONS (4)
  - CARDIAC FAILURE CONGESTIVE [None]
  - CARDIO-RESPIRATORY ARREST [None]
  - CARDIOMYOPATHY [None]
  - DEATH [None]
